FAERS Safety Report 12488565 (Version 1)
Quarter: 2016Q2

REPORT INFORMATION
  Report Type: Spontaneous
  Country: US (occurrence: US)
  Receive Date: 20160622
  Receipt Date: 20160622
  Transmission Date: 20160815
  Serious: Yes (Hospitalization)
  Sender: FDA-Public Use
  Company Number: PHHY2016US082206

PATIENT
  Age: 65 Year
  Sex: Female

DRUGS (3)
  1. BENZYLPENICILLIN [Suspect]
     Active Substance: PENICILLIN G
     Dosage: 4 MIU, Q4H
     Route: 042
  2. PROBENECID. [Concomitant]
     Active Substance: PROBENECID
     Indication: NEUROSYPHILIS
     Dosage: 500 MG, QID
     Route: 065
  3. BENZYLPENICILLIN [Suspect]
     Active Substance: PENICILLIN G
     Indication: NEUROSYPHILIS
     Dosage: 2.4 MIU, ONCE/SINGLE
     Route: 030

REACTIONS (3)
  - Toxic encephalopathy [Recovering/Resolving]
  - Acute kidney injury [Recovering/Resolving]
  - Neurotoxicity [Recovering/Resolving]
